FAERS Safety Report 8889958 (Version 2)
Quarter: 2014Q1

REPORT INFORMATION
  Report Type: Spontaneous
  Country: US (occurrence: US)
  Receive Date: 20121107
  Receipt Date: 20140207
  Transmission Date: 20141002
  Serious: No
  Sender: FDA-Public Use
  Company Number: US-PFIZER INC-2012275999

PATIENT
  Sex: Female

DRUGS (3)
  1. NORVASC [Suspect]
     Dosage: UNK
  2. LEXAPRO [Suspect]
     Dosage: UNK
  3. CELEBREX [Concomitant]
     Dosage: 200 MG, DAILY
     Route: 048

REACTIONS (3)
  - Drug hypersensitivity [Unknown]
  - Local swelling [Unknown]
  - Oedema [Unknown]
